FAERS Safety Report 5913563-1 (Version None)
Quarter: 2008Q4

REPORT INFORMATION
  Report Type: 
  Country: None (occurrence: None)
  Receive Date: 20081009
  Receipt Date: 20081003
  Transmission Date: 20090506
  Serious: Yes (Hospitalization, Other)
  Sender: FDA-Public Use
  Company Number: CA-ABBOTT-08P-028-0480089-00

PATIENT
  Sex: Male
  Weight: 59.928 kg

DRUGS (1)
  1. HUMIRA [Suspect]
     Indication: CROHN'S DISEASE
     Route: 058
     Dates: start: 20070321, end: 20080910

REACTIONS (3)
  - ANAL FISTULA [None]
  - COLOSTOMY [None]
  - RECTAL ABSCESS [None]
